FAERS Safety Report 13608556 (Version 2)
Quarter: 2017Q2

REPORT INFORMATION
  Report Type: Spontaneous
  Country: JP (occurrence: JP)
  Receive Date: 20170602
  Receipt Date: 20170627
  Transmission Date: 20170830
  Serious: Yes (Hospitalization, Other)
  Sender: FDA-Public Use
  Company Number: JP-JNJFOC-20170226168

PATIENT
  Age: 69 Year
  Sex: Female
  Weight: 54 kg

DRUGS (15)
  1. MILTAX [Concomitant]
     Active Substance: VIDARABINE
     Dosage: DOSAGE: UNKNOWN
     Route: 062
     Dates: start: 20160428, end: 20160901
  2. MOHRUS [Concomitant]
     Active Substance: KETOPROFEN
     Dosage: DOSAGE: UNKNOWN
     Route: 062
     Dates: start: 20161011
  3. CRESTOR [Concomitant]
     Active Substance: ROSUVASTATIN CALCIUM
     Route: 048
  4. CALONAL [Concomitant]
     Active Substance: ACETAMINOPHEN
     Route: 065
  5. DEPAS [Concomitant]
     Active Substance: ETIZOLAM
     Route: 048
     Dates: start: 20150803
  6. ADEFURONIC [Concomitant]
     Active Substance: DICLOFENAC SODIUM
     Dosage: DOSAGE: UNKNOWN
     Route: 054
     Dates: start: 20160428, end: 20161212
  7. XYZAL [Concomitant]
     Active Substance: LEVOCETIRIZINE DIHYDROCHLORIDE
     Route: 048
  8. TAKEPRON [Concomitant]
     Active Substance: LANSOPRAZOLE
     Route: 065
  9. AMLODIPINE [Concomitant]
     Active Substance: AMLODIPINE BESYLATE
     Dosage: DAILY DOSE 5 MG
     Route: 048
     Dates: start: 20140206
  10. XARELTO [Suspect]
     Active Substance: RIVAROXABAN
     Indication: ATRIAL FIBRILLATION
     Route: 048
     Dates: start: 20151210, end: 20170211
  11. SINGULAIR [Concomitant]
     Active Substance: MONTELUKAST SODIUM
     Route: 048
  12. PATELL [Concomitant]
     Dosage: DOSAGE: UNKNOWN
     Route: 062
     Dates: start: 20160112, end: 20160215
  13. XARELTO [Suspect]
     Active Substance: RIVAROXABAN
     Indication: ATRIAL FIBRILLATION
     Route: 048
     Dates: start: 20170215, end: 20170223
  14. ALVESCO [Concomitant]
     Active Substance: CICLESONIDE
     Route: 055
  15. SUNRYTHM [Concomitant]
     Active Substance: PILSICAINIDE HYDROCHLORIDE
     Route: 048
     Dates: start: 20150623

REACTIONS (4)
  - Gastritis erosive [Recovered/Resolved]
  - Large intestine polyp [Recovered/Resolved]
  - Back pain [Recovering/Resolving]
  - Diverticulum intestinal haemorrhagic [Recovered/Resolved]

NARRATIVE: CASE EVENT DATE: 20160112
